FAERS Safety Report 23279491 (Version 2)
Quarter: 2024Q1

REPORT INFORMATION
  Report Type: Spontaneous
  Country: FR (occurrence: FR)
  Receive Date: 20231210
  Receipt Date: 20240129
  Transmission Date: 20240410
  Serious: Yes (Life-Threatening)
  Sender: FDA-Public Use
  Company Number: FR-AFSSAPS-CN2023001028

PATIENT
  Age: 52 Year
  Sex: Male
  Weight: 92 kg

DRUGS (2)
  1. OMEPRAZOLE [Suspect]
     Active Substance: OMEPRAZOLE
     Indication: Prophylaxis against gastrointestinal ulcer
     Dosage: 20 MILLIGRAM, ONCE A DAY
     Route: 048
     Dates: start: 20230925, end: 20230927
  2. NAPROXEN SODIUM [Suspect]
     Active Substance: NAPROXEN\NAPROXEN SODIUM
     Indication: Fasciitis
     Dosage: 550 MILLIGRAM, ONCE A DAY (1 IN THE EVENING WHILE EATING)
     Route: 048
     Dates: start: 20230925, end: 20230927

REACTIONS (1)
  - Palatal oedema [Recovered/Resolved]

NARRATIVE: CASE EVENT DATE: 20230927
